FAERS Safety Report 4656721-9 (Version None)
Quarter: 2005Q2

REPORT INFORMATION
  Report Type: 
  Country: None (occurrence: None)
  Receive Date: 20050506
  Receipt Date: 20050427
  Transmission Date: 20051028
  Serious: Yes (Hospitalization, Other)
  Sender: FDA-Public Use
  Company Number: 2005-04-1291

PATIENT
  Age: 71 Year
  Sex: Female
  Weight: 57 kg

DRUGS (5)
  1. PEG-INTRON [Suspect]
     Indication: HEPATITIS C
     Dosage: 80 MCG QW SUBCUTANEOUS
     Route: 058
     Dates: start: 20050311, end: 20050411
  2. REBETOL [Concomitant]
     Indication: HEPATITIS C
     Dosage: 400 MG BID ORAL
     Route: 048
     Dates: start: 20050311, end: 20050411
  3. PROPRANOLOL HYDROCHLORIDE [Concomitant]
  4. SPIRO COMP.-RATIOPHARM [Concomitant]
  5. GABAPENTIN [Concomitant]

REACTIONS (4)
  - ANAEMIA MACROCYTIC [None]
  - ASCITES [None]
  - GENERAL PHYSICAL HEALTH DETERIORATION [None]
  - SPLENOMEGALY [None]
